FAERS Safety Report 25313208 (Version 2)
Quarter: 2025Q2

REPORT INFORMATION
  Report Type: Report from Study
  Country: CN (occurrence: CN)
  Receive Date: 20250514
  Receipt Date: 20250522
  Transmission Date: 20250716
  Serious: Yes (Death, Other)
  Sender: ROCHE
  Company Number: CN-ROCHE-10000281433

PATIENT
  Age: 43 Year
  Sex: Male

DRUGS (11)
  1. MYCOPHENOLATE MOFETIL [Suspect]
     Active Substance: MYCOPHENOLATE MOFETIL
     Indication: Prophylaxis against transplant rejection
     Route: 065
  2. ATEZOLIZUMAB [Suspect]
     Active Substance: ATEZOLIZUMAB
     Indication: Hepatocellular carcinoma
     Route: 065
  3. BEVACIZUMAB [Suspect]
     Active Substance: BEVACIZUMAB
     Indication: Hepatocellular carcinoma
     Route: 065
  4. SIROLIMUS [Suspect]
     Active Substance: SIROLIMUS
     Indication: Prophylaxis against transplant rejection
     Route: 065
  5. LENVATINIB [Concomitant]
     Active Substance: LENVATINIB
  6. CARBOPLATIN [Concomitant]
     Active Substance: CARBOPLATIN
  7. SORAFENIB [Concomitant]
     Active Substance: SORAFENIB
  8. RIVOCERANIB [Concomitant]
     Active Substance: RIVOCERANIB
  9. REGORAFENIB [Concomitant]
     Active Substance: REGORAFENIB
  10. TACROLIMUS [Concomitant]
     Active Substance: TACROLIMUS
  11. PREDNISONE [Concomitant]
     Active Substance: PREDNISONE

REACTIONS (3)
  - Neoplasm recurrence [Unknown]
  - Cytomegalovirus infection [Fatal]
  - Immune-mediated enterocolitis [Unknown]
